FAERS Safety Report 8841236 (Version 1)
Quarter: 2012Q4

REPORT INFORMATION
  Report Type: 
  Country: US (occurrence: US)
  Receive Date: 20121015
  Receipt Date: 20121015
  Transmission Date: 20130627
  Serious: Yes (Other)
  Sender: FDA-Public Use
  Company Number: US-TEVA-363954USA

PATIENT
  Age: 38 Year
  Sex: Female
  Weight: 120.31 kg

DRUGS (1)
  1. PARAGARD 380A [Suspect]
     Indication: DRUG INEFFECTIVE
     Route: 015
     Dates: start: 20120927, end: 20121005

REACTIONS (7)
  - Supraventricular extrasystoles [Unknown]
  - Palpitations [Unknown]
  - Device dislocation [Recovered/Resolved]
  - Haemorrhage [Unknown]
  - Uterine spasm [Unknown]
  - Pyrexia [Unknown]
  - Asthenia [Unknown]
